FAERS Safety Report 9319607 (Version 12)
Quarter: 2015Q3

REPORT INFORMATION
  Report Type: Spontaneous
  Country: US (occurrence: US)
  Receive Date: 20130530
  Receipt Date: 20150814
  Transmission Date: 20151125
  Serious: Yes (Hospitalization, Other)
  Sender: FDA-Public Use
  Company Number: US-GLAXOSMITHKLINE-A1012067A

PATIENT
  Age: 42 Year
  Sex: Female

DRUGS (11)
  1. FLOLAN [Suspect]
     Active Substance: EPOPROSTENOL SODIUM
     Dosage: UNK
  2. FLOLAN [Suspect]
     Active Substance: EPOPROSTENOL SODIUM
     Dosage: 27 NG/KG/MIN
  3. COUMADIN [Concomitant]
     Active Substance: WARFARIN SODIUM
  4. FLOLAN [Suspect]
     Active Substance: EPOPROSTENOL SODIUM
     Dosage: 27 NG/KG/MIN
  5. FLOLAN [Suspect]
     Active Substance: EPOPROSTENOL SODIUM
     Dosage: 35 NG/KG/MIN
     Route: 042
  6. REVATIO [Concomitant]
     Active Substance: SILDENAFIL CITRATE
  7. FLOLAN [Suspect]
     Active Substance: EPOPROSTENOL SODIUM
     Indication: PULMONARY ARTERIAL HYPERTENSION
     Dosage: 18 NG/KG/MIN CONTINUOUSLY22 NG/KG/MIN, 45,000 NG/ML CONCENTRATION, 1.5 MG VIAL STRENGTH24 NG/KG[...]
     Route: 042
     Dates: start: 20090625
  8. FLOLAN [Suspect]
     Active Substance: EPOPROSTENOL SODIUM
     Dosage: 25NG/KG/MIN, CONTINUOUSLY
     Route: 042
  9. FLOLAN [Suspect]
     Active Substance: EPOPROSTENOL SODIUM
     Dosage: UNK
  10. FLOLAN [Suspect]
     Active Substance: EPOPROSTENOL SODIUM
     Dosage: UNK
  11. FLOLAN [Suspect]
     Active Substance: EPOPROSTENOL SODIUM
     Dosage: UNK

REACTIONS (15)
  - Central venous catheterisation [Recovered/Resolved]
  - Nasopharyngitis [Unknown]
  - Fatigue [Recovering/Resolving]
  - Hospitalisation [Unknown]
  - Catheter site discharge [Unknown]
  - Influenza [Unknown]
  - Pulmonary hypertension [Recovered/Resolved]
  - Ill-defined disorder [Unknown]
  - Thyroid disorder [Unknown]
  - Application site papules [Unknown]
  - Catheter site swelling [Unknown]
  - Medical device change [Unknown]
  - Device infusion issue [Recovered/Resolved]
  - Application site erythema [Unknown]
  - Feeling abnormal [Recovering/Resolving]

NARRATIVE: CASE EVENT DATE: 20140404
